FAERS Safety Report 7352895-X (Version None)
Quarter: 2011Q1

REPORT INFORMATION
  Report Type: 
  Country: None (occurrence: None)
  Receive Date: 20110304
  Receipt Date: 20110218
  Transmission Date: 20110831
  Serious: Yes (Hospitalization)
  Sender: FDA-Public Use
  Company Number: JP-2011-10222

PATIENT
  Age: 70 Year
  Sex: Male

DRUGS (3)
  1. PLETAL [Suspect]
     Dosage: 100 MG MILLIGRAM(S), BID, ORAL
     Route: 048
     Dates: start: 20101207, end: 20110207
  2. ASPIRIN [Concomitant]
  3. PLAVIX [Concomitant]

REACTIONS (2)
  - EOSINOPHIL COUNT INCREASED [None]
  - RENAL IMPAIRMENT [None]
